FAERS Safety Report 10550772 (Version 1)
Quarter: 2014Q4

REPORT INFORMATION
  Report Type: Spontaneous
  Country: US (occurrence: None)
  Receive Date: 20141028
  Receipt Date: 20141028
  Transmission Date: 20150529
  Serious: Yes (Disabling)
  Sender: FDA-Public Use
  Company Number: None

PATIENT
  Age: 63 Year
  Sex: Female

DRUGS (2)
  1. TRAMADOL [Suspect]
     Active Substance: TRAMADOL
     Indication: FIBULA FRACTURE
     Dosage: 1/2 EVERY 6-8 HOURS, AS NEEDED, TAKEN BY MOUTH
     Route: 048
     Dates: start: 20140507, end: 20141027
  2. TRAMADOL [Suspect]
     Active Substance: TRAMADOL
     Indication: FOOT FRACTURE
     Dosage: 1/2 EVERY 6-8 HOURS, AS NEEDED, TAKEN BY MOUTH
     Route: 048
     Dates: start: 20140507, end: 20141027

REACTIONS (1)
  - Withdrawal syndrome [None]

NARRATIVE: CASE EVENT DATE: 20141027
